FAERS Safety Report 9288004 (Version 2)
Quarter: 2013Q3

REPORT INFORMATION
  Report Type: Report from Study
  Country: US (occurrence: US)
  Receive Date: 20130514
  Receipt Date: 20130823
  Transmission Date: 20140515
  Serious: Yes (Death, Other)
  Sender: FDA-Public Use
  Company Number: US-ROCHE-1221463

PATIENT
  Sex: 0

DRUGS (1)
  1. CEFTRIAXONE [Suspect]
     Indication: AMYOTROPHIC LATERAL SCLEROSIS
     Route: 065

REACTIONS (14)
  - Sudden death [Fatal]
  - Dyspnoea [Unknown]
  - Cholelithiasis [Unknown]
  - Embolism [Unknown]
  - Thrombosis [Unknown]
  - Pneumonia [Unknown]
  - Cerebral ischaemia [Unknown]
  - Clostridium difficile colitis [Unknown]
  - Subarachnoid haemorrhage [Unknown]
  - Pancreatitis [Unknown]
  - Pulmonary oedema [Unknown]
  - Pseudomembranous colitis [Unknown]
  - Pruritus [Unknown]
  - Neutropenia [Unknown]
